FAERS Safety Report 5083755-5 (Version None)
Quarter: 2006Q3

REPORT INFORMATION
  Report Type: 
  Country: None (occurrence: None)
  Receive Date: 20060818
  Receipt Date: 20060809
  Transmission Date: 20061208
  Serious: Yes (Hospitalization)
  Sender: FDA-Public Use
  Company Number: SE-ABBOTT-06P-150-0339913-00

PATIENT
  Sex: Male

DRUGS (3)
  1. LIPANTHYL MICRONISED [Suspect]
     Indication: HYPERLIPIDAEMIA
     Route: 048
     Dates: start: 20060111, end: 20060515
  2. INSULIN [Concomitant]
     Indication: DRUG USE FOR UNKNOWN INDICATION
  3. ISOPHANE INSULIN [Concomitant]
     Indication: DRUG USE FOR UNKNOWN INDICATION

REACTIONS (8)
  - ABDOMINAL PAIN [None]
  - BLOOD BILIRUBIN INCREASED [None]
  - CALCIFICATION PANCREATIC DUCT [None]
  - CHOLELITHIASIS [None]
  - CONGENITAL CYSTIC KIDNEY DISEASE [None]
  - LIVER DISORDER [None]
  - NAUSEA [None]
  - VOMITING [None]
